FAERS Safety Report 17010145 (Version 1)
Quarter: 2019Q4

REPORT INFORMATION
  Report Type: Spontaneous
  Country: AF (occurrence: AF)
  Receive Date: 20191107
  Receipt Date: 20191107
  Transmission Date: 20200122
  Serious: Yes (Hospitalization)
  Sender: FDA-Public Use
  Company Number: None

PATIENT
  Age: 73 Year
  Sex: Female
  Weight: 71.1 kg

DRUGS (1)
  1. NITROFURANTOIN. [Suspect]
     Active Substance: NITROFURANTOIN
     Indication: URINARY TRACT INFECTION
     Route: 048
     Dates: start: 20191013, end: 20191017

REACTIONS (7)
  - Sepsis [None]
  - Toxicity to various agents [None]
  - Urosepsis [None]
  - Shock [None]
  - Pulmonary toxicity [None]
  - Pleural effusion [None]
  - Eosinophilia [None]

NARRATIVE: CASE EVENT DATE: 20191017
